FAERS Safety Report 6967259-8 (Version None)
Quarter: 2010Q3

REPORT INFORMATION
  Report Type: 
  Country: None (occurrence: None)
  Receive Date: 20100907
  Receipt Date: 20100903
  Transmission Date: 20110219
  Serious: Yes (Death)
  Sender: FDA-Public Use
  Company Number: PHHY2010JP54871

PATIENT
  Age: 30 Year

DRUGS (2)
  1. TEGRETOL [Suspect]
     Dosage: UNK
     Route: 048
  2. TEGRETOL [Suspect]
     Dosage: UNK
     Route: 048

REACTIONS (2)
  - COMPLETED SUICIDE [None]
  - INTENTIONAL OVERDOSE [None]
